FAERS Safety Report 18743990 (Version 6)
Quarter: 2021Q2

REPORT INFORMATION
  Report Type: Spontaneous
  Country: JP (occurrence: JP)
  Receive Date: 20210114
  Receipt Date: 20210610
  Transmission Date: 20210717
  Serious: Yes (Hospitalization, Other)
  Sender: FDA-Public Use
  Company Number: JP-LUNDBECK-DKLU3026706

PATIENT
  Age: 7 Month
  Sex: Female
  Weight: 9.1 kg

DRUGS (12)
  1. SABRIL [Suspect]
     Active Substance: VIGABATRIN
     Dosage: ACTUAL DOSE: 580 MG/DAY
     Route: 048
     Dates: start: 20201031, end: 20201102
  2. SABRIL [Suspect]
     Active Substance: VIGABATRIN
     Dosage: ACTUAL DOSE: 1125 MG/DAY
     Route: 048
     Dates: start: 20210106, end: 20210108
  3. SABRIL [Suspect]
     Active Substance: VIGABATRIN
     Dosage: ACTUAL DOSE:250 MG/DAY
     Route: 048
     Dates: start: 20210514, end: 20210516
  4. SABRIL [Suspect]
     Active Substance: VIGABATRIN
     Dosage: ACTUAL DOSE: 1000 MG/DAY
     Route: 048
     Dates: start: 20201106, end: 20201119
  5. TRICLORYL [Concomitant]
     Active Substance: TRICLOFOS SODIUM
     Indication: INVESTIGATION
  6. SABRIL [Suspect]
     Active Substance: VIGABATRIN
     Dosage: ACTUAL DOSE: 780 MG/DAY
     Route: 048
     Dates: start: 20201103, end: 20201105
  7. SABRIL [Suspect]
     Active Substance: VIGABATRIN
     Indication: INFANTILE SPASMS
     Dosage: ACTUAL DOSE: 380 MG/DAY
     Route: 048
     Dates: start: 20201027, end: 20201029
  8. SABRIL [Suspect]
     Active Substance: VIGABATRIN
     Dosage: ACTUAL DOSE: 800 MG/DAY
     Route: 048
     Dates: start: 20210109, end: 20210510
  9. SABRIL [Suspect]
     Active Substance: VIGABATRIN
     Dosage: ACTUAL DOSE:500 MG/DAY
     Route: 048
     Dates: start: 20210511, end: 20210513
  10. SABRIL [Suspect]
     Active Substance: VIGABATRIN
     Indication: INFANTILE SPASMS
     Dosage: ACTUAL DOSE: 1250 MG/DAY
     Route: 048
     Dates: start: 20201120, end: 20210105
  11. LEVETIRACETAM. [Suspect]
     Active Substance: LEVETIRACETAM
     Indication: INFANTILE SPASMS
     Route: 048
     Dates: start: 20201205, end: 20210108
  12. TRICLORYL [Concomitant]
     Active Substance: TRICLOFOS SODIUM
     Indication: PROPHYLAXIS
     Route: 065
     Dates: start: 20201204, end: 20210105

REACTIONS (3)
  - Magnetic resonance imaging head abnormal [Recovered/Resolved]
  - Hypertension [Recovering/Resolving]
  - Anaemia [Recovered/Resolved]

NARRATIVE: CASE EVENT DATE: 20201222
